FAERS Safety Report 9812447 (Version 1)
Quarter: 2014Q1

REPORT INFORMATION
  Report Type: Spontaneous
  Country: US (occurrence: US)
  Receive Date: 20140113
  Receipt Date: 20140113
  Transmission Date: 20141002
  Serious: No
  Sender: FDA-Public Use
  Company Number: US-BIOGENIDEC-2014BI002770

PATIENT
  Age: 50 Year
  Sex: Female

DRUGS (5)
  1. TYSABRI [Suspect]
     Indication: MULTIPLE SCLEROSIS
     Route: 042
     Dates: start: 20050206, end: 20050206
  2. METFORMIN [Concomitant]
     Indication: DIABETES MELLITUS
  3. CENTHROID [Concomitant]
     Indication: THYROID DISORDER
  4. LOSARTIN [Concomitant]
     Indication: HYPERTENSION
  5. SIMVASTATIN [Concomitant]
     Indication: BLOOD CHOLESTEROL INCREASED

REACTIONS (2)
  - Visual impairment [Unknown]
  - Hypersensitivity [Unknown]
